FAERS Safety Report 5178311-4 (Version None)
Quarter: 2006Q4

REPORT INFORMATION
  Report Type: 
  Country: None (occurrence: None)
  Receive Date: 20061218
  Receipt Date: 20060825
  Transmission Date: 20070319
  Serious: No
  Sender: FDA-Public Use
  Company Number: US-AMGEN-KDL191226

PATIENT
  Age: 64 Year
  Sex: Female

DRUGS (5)
  1. ENBREL [Suspect]
     Indication: RHEUMATOID ARTHRITIS
     Route: 058
     Dates: start: 20050901
  2. METHOTREXATE [Concomitant]
  3. TRILEPTAL [Concomitant]
  4. ZOLOFT [Concomitant]
  5. LOPID [Concomitant]

REACTIONS (1)
  - HEPATIC ADENOMA [None]
